FAERS Safety Report 21842345 (Version 2)
Quarter: 2023Q1

REPORT INFORMATION
  Report Type: Spontaneous
  Country: JP (occurrence: JP)
  Receive Date: 20230110
  Receipt Date: 20230207
  Transmission Date: 20230418
  Serious: Yes (Hospitalization)
  Sender: FDA-Public Use
  Company Number: JP-Atnahs Limited-ATNAHS20230100061

PATIENT
  Age: 8 Decade
  Sex: Female

DRUGS (1)
  1. BONVIVA [Suspect]
     Active Substance: IBANDRONATE SODIUM
     Indication: Osteoporosis
     Dosage: 1 MG
     Route: 042
     Dates: start: 20220106

REACTIONS (3)
  - Pulmonary thrombosis [Recovered/Resolved]
  - Antiphospholipid syndrome [Unknown]
  - Varicose vein [Unknown]

NARRATIVE: CASE EVENT DATE: 20221228
